FAERS Safety Report 6665211-3 (Version None)
Quarter: 2010Q2

REPORT INFORMATION
  Report Type: 
  Country: None (occurrence: None)
  Receive Date: 20100402
  Receipt Date: 20100326
  Transmission Date: 20101027
  Serious: Yes (Other)
  Sender: FDA-Public Use
  Company Number: JP-ASTRAZENECA-2009SE31994

PATIENT
  Age: 87 Year
  Sex: Female
  Weight: 38 kg

DRUGS (5)
  1. ANAPEINE [Suspect]
     Indication: NERVE BLOCK
     Route: 053
     Dates: start: 20091208, end: 20091208
  2. DIPRIVAN [Concomitant]
     Indication: GENERAL ANAESTHESIA
     Dosage: ABOUT 150 MG DAILY
     Route: 042
     Dates: start: 20091208, end: 20091208
  3. ULTIVA [Concomitant]
     Indication: GENERAL ANAESTHESIA
     Route: 042
     Dates: start: 20091208, end: 20091208
  4. FENTANYL [Concomitant]
     Indication: GENERAL ANAESTHESIA
     Route: 042
     Dates: start: 20091208, end: 20091208
  5. MUSCURATE [Concomitant]
     Indication: GENERAL ANAESTHESIA
     Route: 042
     Dates: start: 20091208, end: 20091208

REACTIONS (1)
  - DRUG TOXICITY [None]
